FAERS Safety Report 8172002-3 (Version None)
Quarter: 2012Q1

REPORT INFORMATION
  Report Type: 
  Country: None (occurrence: None)
  Receive Date: 20120228
  Receipt Date: 20120223
  Transmission Date: 20120608
  Serious: Yes (Other)
  Sender: FDA-Public Use
  Company Number: CA-PFIZER INC-2012049466

PATIENT
  Age: 43 Year
  Sex: Male

DRUGS (2)
  1. RISPERDAL [Concomitant]
  2. ZIPRASIDONE HYDROCHLORIDE [Suspect]
     Dosage: 120 MG, 1X/DAY
     Dates: start: 20100101

REACTIONS (2)
  - DECREASED APPETITE [None]
  - WEIGHT DECREASED [None]
